FAERS Safety Report 5347629-4 (Version None)
Quarter: 2007Q2

REPORT INFORMATION
  Report Type: 
  Country: None (occurrence: None)
  Receive Date: 20070606
  Receipt Date: 20070530
  Transmission Date: 20071010
  Serious: Yes (Hospitalization)
  Sender: FDA-Public Use
  Company Number: US-BRISTOL-MYERS SQUIBB COMPANY-13802103

PATIENT
  Age: 78 Year
  Sex: Male

DRUGS (6)
  1. ERBITUX [Suspect]
     Indication: COLON CANCER METASTATIC
     Dates: start: 20060401
  2. IRINOTECAN HCL [Suspect]
     Indication: COLON CANCER METASTATIC
     Dates: start: 20060401
  3. ATORVASTATIN [Concomitant]
  4. LANSOPRAZOLE [Concomitant]
  5. QUINAPRIL [Concomitant]
  6. METOPROLOL SUCCINATE [Concomitant]

REACTIONS (4)
  - DIARRHOEA [None]
  - ENTERITIS [None]
  - HYPERBILIRUBINAEMIA [None]
  - NEUTROPENIA [None]
